FAERS Safety Report 24356362 (Version 2)
Quarter: 2024Q4

REPORT INFORMATION
  Report Type: Spontaneous
  Country: DE (occurrence: DE)
  Receive Date: 20240924
  Receipt Date: 20241023
  Transmission Date: 20250114
  Serious: Yes (Hospitalization, Other)
  Sender: ROCHE
  Company Number: None

PATIENT
  Age: 76 Year
  Sex: Male
  Weight: 86.2 kg

DRUGS (12)
  1. TRASTUZUMAB [Suspect]
     Active Substance: TRASTUZUMAB
     Indication: Oesophageal adenocarcinoma
     Dosage: D1 8MG/KG IV;
     Route: 042
     Dates: start: 20240318
  2. TRASTUZUMAB [Suspect]
     Active Substance: TRASTUZUMAB
     Dosage: 6MG/KG IV D22/D43 PRE- AND POST OP, AFTERWARDS 6MG/KG IV D1 Q3W. DOSE GIVEN BEFORE ONSET OF EVENT WA
     Route: 042
  3. TRASTUZUMAB [Suspect]
     Active Substance: TRASTUZUMAB
     Dosage: 6MG/KG IV D22/D43 PRE- AND POST OP, AFTERWARDS 6MG/KG IV D1 Q3W. DOSE GIVEN BEFORE ONSET OF EVENT WA
     Route: 042
     Dates: start: 20240819
  4. PEMBROLIZUMAB [Suspect]
     Active Substance: PEMBROLIZUMAB
     Indication: Oesophageal adenocarcinoma
     Dosage: 200 MG FLAT DOSE, IV, D1/D22/D43 PRE- AND POST OP, AFTERWARDS D1Q3W;
     Route: 042
     Dates: start: 20240318
  5. FLUOROURACIL [Suspect]
     Active Substance: FLUOROURACIL
     Indication: Oesophageal adenocarcinoma
     Dosage: 2600 MG/M2, IV, D1/D15/D29 AND D43 PRE- AND POST OP. DOSE GIVEN BEFORE EVENT ONSET WAS 3800 MG;
     Route: 042
     Dates: start: 20240318
  6. FLUOROURACIL [Suspect]
     Active Substance: FLUOROURACIL
     Dosage: 2600 MG/M2, IV, D1/D15/D29 AND D43 PRE- AND POST OP. DOSE GIVEN BEFORE EVENT ONSET WAS 3800 MG;
     Route: 042
     Dates: start: 20240318
  7. DOCETAXEL [Suspect]
     Active Substance: DOCETAXEL
     Indication: Oesophageal adenocarcinoma
     Dosage: 50 MG/M2, IV, D1/D15/D29 AND D43 PRE- AND POST OP. DOSE GIVEN BEFORE EVENT ONSET WAS 74 MG;
     Route: 042
     Dates: start: 20240318
  8. DOCETAXEL [Suspect]
     Active Substance: DOCETAXEL
     Dosage: 50 MG/M2, IV, D1/D15/D29 AND D43 PRE- AND POST OP. DOSE GIVEN BEFORE EVENT ONSET WAS 74 MG;
     Route: 042
     Dates: start: 20240318
  9. LEUCOVORIN [Suspect]
     Active Substance: LEUCOVORIN\LEUCOVORIN CALCIUM
     Indication: Oesophageal adenocarcinoma
     Dosage: 200 MG/M2, IV, D1/D15/D29 AND D43 PRE- AND POST OP. DOSE GIVEN BEFORE EVENT ONSET WAS 300 MG;
     Route: 042
     Dates: start: 20240318
  10. LEUCOVORIN [Suspect]
     Active Substance: LEUCOVORIN\LEUCOVORIN CALCIUM
     Route: 042
     Dates: start: 20240318
  11. OXALIPLATIN [Suspect]
     Active Substance: OXALIPLATIN
     Indication: Oesophageal adenocarcinoma
     Dosage: 85 MG/M2, IV, D1/D15/D29 AND D43 PRE- AND POST OP. DOSE GIVEN BEFORE ONSET OF EVENT WAS 125 MG;
     Route: 042
     Dates: start: 20240318
  12. OXALIPLATIN [Suspect]
     Active Substance: OXALIPLATIN
     Route: 065
     Dates: start: 20240318

REACTIONS (4)
  - Acute myocardial infarction [Recovered/Resolved]
  - Immune-mediated myocarditis [Recovered/Resolved]
  - Off label use [Unknown]
  - Coronary artery disease [Unknown]

NARRATIVE: CASE EVENT DATE: 20240805
